FAERS Safety Report 6077924-5 (Version None)
Quarter: 2009Q1

REPORT INFORMATION
  Report Type: 
  Country: None (occurrence: None)
  Receive Date: 20090213
  Receipt Date: 20090119
  Transmission Date: 20090719
  Serious: Yes (Hospitalization, Other)
  Sender: FDA-Public Use
  Company Number: FR-ROCHE-601837

PATIENT
  Sex: Female

DRUGS (15)
  1. CELLCEPT [Interacting]
     Indication: LUNG TRANSPLANT
     Route: 042
     Dates: start: 20081114, end: 20081118
  2. CELLCEPT [Interacting]
     Route: 042
  3. CELLCEPT [Interacting]
     Dosage: ROUTE: ORAL FOR THIS THERAPY
     Route: 042
  4. TACROLIMUS [Interacting]
     Indication: DRUG USE FOR UNKNOWN INDICATION
     Route: 060
     Dates: start: 20081114, end: 20081117
  5. TACROLIMUS [Interacting]
     Dosage: PROGRESSIVELY RE-ADMINISTERED FROM 2 THEN 4 MG PER DAY.
     Route: 060
     Dates: start: 20081119
  6. TACROLIMUS [Interacting]
     Dosage: DOSE OF WAS REDUCED AND STOPPED.
     Route: 060
  7. TACROLIMUS [Interacting]
     Route: 060
  8. TACROLIMUS [Interacting]
     Route: 060
  9. ACYCLOVIR [Interacting]
     Indication: DRUG USE FOR UNKNOWN INDICATION
     Route: 042
     Dates: start: 20081113, end: 20081114
  10. VFEND [Interacting]
     Indication: DRUG USE FOR UNKNOWN INDICATION
     Route: 042
     Dates: start: 20081113, end: 20081117
  11. VFEND [Interacting]
     Dosage: DOSE WAS DECREASED.
     Route: 042
     Dates: start: 20081117
  12. METHYLPREDNISOLONE 4MG TAB [Suspect]
     Indication: DRUG USE FOR UNKNOWN INDICATION
     Route: 042
     Dates: start: 20081114, end: 20081117
  13. METHYLPREDNISOLONE 4MG TAB [Suspect]
     Dosage: DOSE WAS DECREASED
     Route: 042
     Dates: start: 20081117
  14. OMEPRAZOLE [Suspect]
     Indication: DRUG USE FOR UNKNOWN INDICATION
     Route: 042
     Dates: start: 20081113, end: 20081116
  15. OMEPRAZOLE [Suspect]
     Dosage: THERAPY WAS STOPPED
     Route: 042
     Dates: start: 20081120

REACTIONS (5)
  - CONVULSION [None]
  - DRUG EFFECT INCREASED [None]
  - DRUG INTERACTION [None]
  - LIVER DISORDER [None]
  - WRONG TECHNIQUE IN DRUG USAGE PROCESS [None]
